FAERS Safety Report 24353326 (Version 3)
Quarter: 2024Q4

REPORT INFORMATION
  Report Type: Spontaneous
  Country: US (occurrence: US)
  Receive Date: 20240923
  Receipt Date: 20241026
  Transmission Date: 20250114
  Serious: Yes (Hospitalization, Other)
  Sender: Kenvue
  Company Number: US-JNJFOC-20240951284

PATIENT
  Sex: Female

DRUGS (10)
  1. WOMENS ROGAINE UNSCENTED [Suspect]
     Active Substance: MINOXIDIL
     Indication: Alopecia
     Dosage: 5%, ONCE CAP ONCE IN THE MORNING
     Route: 061
     Dates: start: 20240405, end: 20240909
  2. VERAPAMIL [Suspect]
     Active Substance: VERAPAMIL HYDROCHLORIDE
     Indication: Supraventricular tachycardia
     Dosage: UNK
     Route: 065
     Dates: start: 19950210, end: 20240910
  3. ATORVASTATIN [Suspect]
     Active Substance: ATORVASTATIN
     Indication: Hyperlipidaemia
     Dosage: UNK
     Route: 065
     Dates: start: 20010304
  4. OMEPRAZOLE [Suspect]
     Active Substance: OMEPRAZOLE
     Indication: Gastrooesophageal reflux disease
     Dosage: UNK
     Route: 065
     Dates: start: 20210102
  5. VITAMIN D [Suspect]
     Active Substance: VITAMIN D NOS
     Indication: Osteopenia
     Dosage: UNK
     Route: 065
     Dates: start: 20150502
  6. GLUCOSAMINE SULFATE [Suspect]
     Active Substance: GLUCOSAMINE SULFATE
     Indication: Osteoarthritis
     Dosage: UNK
     Route: 065
     Dates: start: 20200610
  7. CHONDROITIN SULFATE (BOVINE) [Suspect]
     Active Substance: CHONDROITIN SULFATE (BOVINE)
     Indication: Product used for unknown indication
     Route: 065
  8. ENABLEX [Suspect]
     Active Substance: DARIFENACIN HYDROBROMIDE
     Indication: Bladder irritation
     Dosage: 15 MILLIGRAM
     Route: 065
     Dates: start: 20150306
  9. BIOTIN [Suspect]
     Active Substance: BIOTIN
     Indication: Alopecia
     Dosage: UNK
     Route: 065
     Dates: start: 20210710
  10. KIRKLAND SIGNATURE ALLERCLEAR [Suspect]
     Active Substance: LORATADINE
     Indication: Product used for unknown indication
     Dosage: 10 MILLIGRAM
     Route: 065
     Dates: start: 20210210

REACTIONS (5)
  - Chest discomfort [Recovering/Resolving]
  - Syncope [Unknown]
  - Dizziness [Recovering/Resolving]
  - Overdose [Unknown]
  - Hypotension [Recovering/Resolving]

NARRATIVE: CASE EVENT DATE: 20240101
